FAERS Safety Report 6506863-8 (Version None)
Quarter: 2009Q4

REPORT INFORMATION
  Report Type: 
  Country: None (occurrence: None)
  Receive Date: 20091221
  Receipt Date: 20091215
  Transmission Date: 20100525
  Serious: Yes (Hospitalization, Other)
  Sender: FDA-Public Use
  Company Number: JP-BAYER-200914059BYL

PATIENT
  Age: 62 Year
  Sex: Male

DRUGS (3)
  1. NEXAVAR [Suspect]
     Indication: HEPATIC NEOPLASM MALIGNANT
     Dosage: TOTAL DAILY DOSE: 800 MG  UNIT DOSE: 200 MG
     Route: 048
     Dates: start: 20090904, end: 20091018
  2. NEXAVAR [Suspect]
     Dosage: TOTAL DAILY DOSE: 800 MG  UNIT DOSE: 200 MG
     Route: 048
     Dates: start: 20091019
  3. NEXAVAR [Suspect]
     Dosage: TOTAL DAILY DOSE: 400 MG  UNIT DOSE: 200 MG
     Route: 048
     Dates: start: 20091101

REACTIONS (5)
  - ANAEMIA [None]
  - DECREASED APPETITE [None]
  - GASTRIC HAEMORRHAGE [None]
  - MALAISE [None]
  - PALMAR-PLANTAR ERYTHRODYSAESTHESIA SYNDROME [None]
